FAERS Safety Report 25665785 (Version 1)
Quarter: 2025Q3

REPORT INFORMATION
  Report Type: Spontaneous
  Country: US (occurrence: US)
  Receive Date: 20250811
  Receipt Date: 20250811
  Transmission Date: 20251021
  Serious: No
  Sender: MYLAN
  Company Number: US-MYLANLABS-2025M1065953

PATIENT
  Sex: Female
  Weight: 99.79 kg

DRUGS (4)
  1. ESTRADIOL TRANSDERMAL SYSTEM [Suspect]
     Active Substance: ESTRADIOL
     Indication: Product used for unknown indication
     Dosage: 0.06 MILLIGRAM, QD (PER DAY, PATCH ONCE WEEKLY)
  2. ESTRADIOL TRANSDERMAL SYSTEM [Suspect]
     Active Substance: ESTRADIOL
     Dosage: 0.06 MILLIGRAM, QD (PER DAY, PATCH ONCE WEEKLY)
     Route: 062
  3. ESTRADIOL TRANSDERMAL SYSTEM [Suspect]
     Active Substance: ESTRADIOL
     Dosage: 0.06 MILLIGRAM, QD (PER DAY, PATCH ONCE WEEKLY)
     Route: 062
  4. ESTRADIOL TRANSDERMAL SYSTEM [Suspect]
     Active Substance: ESTRADIOL
     Dosage: 0.06 MILLIGRAM, QD (PER DAY, PATCH ONCE WEEKLY)

REACTIONS (4)
  - Dermatitis contact [Unknown]
  - Application site pain [Unknown]
  - Application site erythema [Unknown]
  - Product adhesion issue [Unknown]
